FAERS Safety Report 17409255 (Version 2)
Quarter: 2020Q2

REPORT INFORMATION
  Report Type: Spontaneous
  Country: US (occurrence: US)
  Receive Date: 20200212
  Receipt Date: 20200406
  Transmission Date: 20200713
  Serious: Yes (Other)
  Sender: FDA-Public Use
  Company Number: US-PFIZER INC-2020044040

PATIENT
  Age: 66 Year
  Sex: Female
  Weight: 70.31 kg

DRUGS (4)
  1. IBRANCE [Suspect]
     Active Substance: PALBOCICLIB
     Indication: ADENOCARCINOMA
     Dosage: 75 MG, 1X/DAY
     Route: 048
  2. IBRANCE [Suspect]
     Active Substance: PALBOCICLIB
     Indication: BREAST CANCER FEMALE
     Dosage: 75 MG, 1X/DAY FOR 21 DAYS
     Dates: start: 20200312
  3. IBRANCE [Suspect]
     Active Substance: PALBOCICLIB
     Indication: METASTATIC UTERINE CANCER
     Dosage: UNK
  4. LETROZOLE. [Concomitant]
     Active Substance: LETROZOLE
     Dosage: 2.5 MG, DAILY

REACTIONS (3)
  - White blood cell count decreased [Recovered/Resolved]
  - Nausea [Unknown]
  - Asthenia [Unknown]
